FAERS Safety Report 7733697-9 (Version None)
Quarter: 2011Q3

REPORT INFORMATION
  Report Type: 
  Country: None (occurrence: None)
  Receive Date: 20110901
  Receipt Date: 20110822
  Transmission Date: 20111222
  Serious: Yes (Hospitalization)
  Sender: FDA-Public Use
  Company Number: 1000023084

PATIENT
  Age: 88 Year
  Sex: Female

DRUGS (6)
  1. CHLORTHALIDONE (CHLORTALIDONE) (CHLORTALIDONE) [Concomitant]
  2. METOPROLOL TARTRATE [Suspect]
     Indication: HYPERTENSION
     Dosage: 100 MG (50 MG, 2 IN 1 D)
  3. HYDRALAZINE (HYDRALAZINE) (HYDRALAZINE) [Concomitant]
  4. CLONIDINE [Suspect]
     Indication: HYPERTENSION
     Dosage: 0.0429 MG (0.3 MG, 1 IN 1 WEEK0, TRANSDERMAL
     Route: 062
  5. LISINOPRIL [Concomitant]
  6. DILTIAZEM [Suspect]
     Indication: HYPERTENSION
     Dosage: 180 MG (180 MG, 1 IN 1 D)

REACTIONS (7)
  - CEREBRAL ATROPHY [None]
  - GLOMERULAR FILTRATION RATE DECREASED [None]
  - HAEMOGLOBIN DECREASED [None]
  - HEART RATE DECREASED [None]
  - NODAL RHYTHM [None]
  - PRESYNCOPE [None]
  - FATIGUE [None]
